FAERS Safety Report 7618519-9 (Version None)
Quarter: 2011Q3

REPORT INFORMATION
  Report Type: 
  Country: None (occurrence: None)
  Receive Date: 20110718
  Receipt Date: 20090416
  Transmission Date: 20111222
  Serious: Yes (Death, Other)
  Sender: FDA-Public Use
  Company Number: US-BAYER-200918269NA

PATIENT
  Age: 38 Year
  Sex: Male
  Weight: 127.89 kg

DRUGS (9)
  1. VANCOMYCIN [Concomitant]
     Dosage: UNK
     Route: 042
     Dates: start: 20030708
  2. TRASYLOL [Suspect]
     Dosage: 200 ML, PUMP PRIME
     Route: 042
     Dates: start: 20030708, end: 20030708
  3. ALDACTONE [Concomitant]
     Dosage: LONG TERM
  4. PROTONIX [Concomitant]
     Dosage: LONG TERM
  5. INDOMETHACIN [Concomitant]
     Dosage: LONG TERM
  6. PAPAVERINE [Concomitant]
     Dosage: 60 MG, UNK
     Route: 042
     Dates: start: 20030708
  7. PROCARDIA XL [Concomitant]
     Dosage: LONG TERM
  8. TRASYLOL [Suspect]
     Indication: PRODUCT USED FOR UNKNOWN INDICATION
     Dosage: 1.4 ML, TEST DOSE
     Route: 042
     Dates: start: 20030708, end: 20030708
  9. VERSED [Concomitant]
     Dosage: UNK
     Route: 042
     Dates: start: 20030708

REACTIONS (13)
  - PAIN [None]
  - DEATH [None]
  - UNEVALUABLE EVENT [None]
  - FEAR [None]
  - RENAL FAILURE [None]
  - RENAL INJURY [None]
  - STRESS [None]
  - MULTI-ORGAN FAILURE [None]
  - INJURY [None]
  - ANHEDONIA [None]
  - RENAL IMPAIRMENT [None]
  - EMOTIONAL DISTRESS [None]
  - ANXIETY [None]
